FAERS Safety Report 7939903-X (Version None)
Quarter: 2011Q4

REPORT INFORMATION
  Report Type: 
  Country: None (occurrence: None)
  Receive Date: 20111125
  Receipt Date: 20110913
  Transmission Date: 20120403
  Serious: No
  Sender: FDA-Public Use
  Company Number: US-BAYER-2011-090396

PATIENT
  Age: 33 Year
  Sex: Male

DRUGS (1)
  1. NAPROXEN (ALEVE) [Suspect]
     Indication: ARTHRITIS
     Dosage: 4 DF, ONCE
     Route: 048
     Dates: end: 20110913

REACTIONS (1)
  - NO ADVERSE EVENT [None]
